FAERS Safety Report 7151718-1 (Version None)
Quarter: 2010Q4

REPORT INFORMATION
  Report Type: 
  Country: None (occurrence: None)
  Receive Date: 20101210
  Receipt Date: 20101130
  Transmission Date: 20110411
  Serious: Yes (Hospitalization)
  Sender: FDA-Public Use
  Company Number: PHHY2010US78906

PATIENT
  Sex: Female
  Weight: 91.7 kg

DRUGS (14)
  1. RECLAST [Suspect]
     Indication: OSTEOPOROSIS
     Dosage: 5 MG
     Route: 042
     Dates: start: 20100920, end: 20100920
  2. PROTONIX [Concomitant]
     Dosage: 40 MG, BID
  3. DIOVAN HCT [Concomitant]
     Dosage: 12.5 MG, QD
  4. NEURONTIN [Concomitant]
     Dosage: 100 MG, TID
  5. LASIX [Concomitant]
     Dosage: 40 MG, BID
  6. POTASSIUM CHLORIDE [Concomitant]
     Dosage: 10 MG, QD
  7. SPIRIVA [Concomitant]
     Dosage: 1 CAP DAILY
  8. SYMBICORT [Concomitant]
     Dosage: 2 PUFFS BID
  9. DUONEB [Concomitant]
  10. VENTOLIN [Concomitant]
  11. SINGULAIR [Concomitant]
     Dosage: 10 MG, DAILY
     Route: 048
  12. AMBIEN [Concomitant]
     Dosage: 10 MG, AT BED TIME
  13. DARVOCET-N 100 [Concomitant]
     Dosage: 1 TABLET THREE TIMES A DAY
     Route: 048
  14. ACTOS [Concomitant]

REACTIONS (16)
  - ASTHENIA [None]
  - BRONCHOSPASM [None]
  - CHEST DISCOMFORT [None]
  - CHRONIC OBSTRUCTIVE PULMONARY DISEASE [None]
  - DRUG HYPERSENSITIVITY [None]
  - DYSPNOEA [None]
  - HYPOXIA [None]
  - MYALGIA [None]
  - NAUSEA [None]
  - PAIN [None]
  - PHARYNGITIS [None]
  - RASH [None]
  - RESPIRATORY DISTRESS [None]
  - RESPIRATORY RATE INCREASED [None]
  - TACHYPNOEA [None]
  - WHEEZING [None]
